FAERS Safety Report 20691891 (Version 2)
Quarter: 2022Q2

REPORT INFORMATION
  Report Type: Report from Study
  Country: IT (occurrence: IT)
  Receive Date: 20220408
  Receipt Date: 20220415
  Transmission Date: 20220721
  Serious: No
  Sender: FDA-Public Use
  Company Number: IT-JNJFOC-20220401569

PATIENT
  Age: 58 Year
  Sex: Male
  Weight: 66 kg

DRUGS (10)
  1. IBRUTINIB [Suspect]
     Active Substance: IBRUTINIB
     Indication: Mantle cell lymphoma
     Dosage: DATE OF MOST RECENT DOSE OF IBRUTINIB PRIOR TO AE ONSET: 28 FEB 2022
     Route: 048
     Dates: start: 20200921
  2. RITUXIMAB [Concomitant]
     Active Substance: RITUXIMAB
     Indication: Mantle cell lymphoma
     Dosage: RECENT DOSE PRIOR TO EVENT: 20 MAR 2021
     Route: 065
     Dates: start: 20200921
  3. CYCLOPHOSPHAMIDE [Concomitant]
     Active Substance: CYCLOPHOSPHAMIDE
     Indication: Mantle cell lymphoma
     Dosage: RECENT DOSE PRIOR TO EVENT: 20 MAR 2021
     Route: 065
     Dates: start: 20200921
  4. DOXORUBICIN [Concomitant]
     Active Substance: DOXORUBICIN
     Indication: Mantle cell lymphoma
     Dosage: RECENT DOSE PRIOR TO EVENT: 20 MAR 2021
     Route: 065
     Dates: start: 20200921
  5. PREDNISONE [Concomitant]
     Active Substance: PREDNISONE
     Indication: Mantle cell lymphoma
     Dosage: RECENT DOSE PRIOR TO EVENT: 20 MAR 2021
     Route: 065
     Dates: start: 20200921
  6. DEXAMETHASONE [Concomitant]
     Active Substance: DEXAMETHASONE
     Indication: Mantle cell lymphoma
     Dosage: RECENT DOSE PRIOR TO EVENT: 20 MAR 2021
     Route: 065
     Dates: start: 20200921
  7. CYTARABINE [Concomitant]
     Active Substance: CYTARABINE
     Indication: Mantle cell lymphoma
     Dosage: RECENT DOSE PRIOR TO EVENT: 20 MAR 2021
     Route: 065
     Dates: start: 20200921
  8. VINCRISTINE [Concomitant]
     Active Substance: VINCRISTINE
     Indication: Mantle cell lymphoma
     Dosage: RECENT DOSE PRIOR TO EVENT: 20 MAR 2021
     Route: 065
     Dates: start: 20200921
  9. OXALIPLATIN [Concomitant]
     Active Substance: OXALIPLATIN
     Indication: Mantle cell lymphoma
     Dosage: RECENT DOSE PRIOR TO EVENT: 20 MAR 2021
     Route: 065
     Dates: start: 20200921
  10. ATOVAQUONE [Concomitant]
     Active Substance: ATOVAQUONE
     Indication: Infection prophylaxis
     Dates: start: 20201104

REACTIONS (1)
  - Basal cell carcinoma [Not Recovered/Not Resolved]

NARRATIVE: CASE EVENT DATE: 20220301
